FAERS Safety Report 20696352 (Version 1)
Quarter: 2022Q2

REPORT INFORMATION
  Report Type: Spontaneous
  Country: US (occurrence: US)
  Receive Date: 20220411
  Receipt Date: 20220411
  Transmission Date: 20220720
  Serious: Yes (Other)
  Sender: FDA-Public Use
  Company Number: US-AMNEAL PHARMACEUTICALS-2022-AMRX-00908

PATIENT
  Age: 85 Year
  Sex: Female

DRUGS (1)
  1. ISOPROTERENOL HYDROCHLORIDE [Suspect]
     Active Substance: ISOPROTERENOL HYDROCHLORIDE
     Indication: Nodal arrhythmia
     Dosage: UNK
     Route: 042

REACTIONS (2)
  - Stress cardiomyopathy [Unknown]
  - Cardiogenic shock [Unknown]
